FAERS Safety Report 4748626-X (Version None)
Quarter: 2005Q3

REPORT INFORMATION
  Report Type: 
  Country: None (occurrence: None)
  Receive Date: 20050817
  Receipt Date: 20050804
  Transmission Date: 20060218
  Serious: No
  Sender: FDA-Public Use
  Company Number: SP00479

PATIENT
  Age: 37 Year
  Sex: Male
  Weight: 108.8633 kg

DRUGS (4)
  1. COLAZAL [Suspect]
     Indication: COLITIS ULCERATIVE
     Dosage: SEE IMAGE
     Route: 048
     Dates: start: 20050407
  2. COLAZAL [Suspect]
     Indication: COLITIS ULCERATIVE
     Dosage: SEE IMAGE
     Route: 048
     Dates: start: 20050701
  3. TYLENOL [Suspect]
     Indication: HEADACHE
     Dates: start: 20050501, end: 20050501
  4. NYQUIL [Suspect]
     Indication: NASOPHARYNGITIS
     Dates: start: 20050803, end: 20050803

REACTIONS (17)
  - ABDOMINAL PAIN UPPER [None]
  - ARTHROPOD BITE [None]
  - COLITIS ULCERATIVE [None]
  - CONDITION AGGRAVATED [None]
  - COUGH [None]
  - DIARRHOEA [None]
  - DRUG INTERACTION [None]
  - DYSPNOEA [None]
  - ERYTHEMA [None]
  - FEELING HOT [None]
  - HEADACHE [None]
  - NASOPHARYNGITIS [None]
  - NAUSEA [None]
  - OEDEMA PERIPHERAL [None]
  - PRURITUS GENERALISED [None]
  - SWELLING FACE [None]
  - URTICARIA [None]
